FAERS Safety Report 24355599 (Version 4)
Quarter: 2024Q4

REPORT INFORMATION
  Report Type: Spontaneous
  Country: US (occurrence: US)
  Receive Date: 20240924
  Receipt Date: 20241205
  Transmission Date: 20250115
  Serious: Yes (Hospitalization, Other)
  Sender: GLAXOSMITHKLINE
  Company Number: US-GSK-US2024AMR115368

PATIENT

DRUGS (3)
  1. LAMICTAL [Suspect]
     Active Substance: LAMOTRIGINE
     Indication: Product used for unknown indication
     Dosage: UNK, 125 MG OR 150 MG
  2. LAMICTAL [Suspect]
     Active Substance: LAMOTRIGINE
     Dosage: 100 MG IN EVENING
  3. SUNOSI [Suspect]
     Active Substance: SOLRIAMFETOL
     Indication: Product used for unknown indication
     Dosage: 150 MG, QD (DURING THE DAYTIME)

REACTIONS (9)
  - Arrhythmia [Not Recovered/Not Resolved]
  - Serum serotonin increased [Recovered/Resolved]
  - Trismus [Unknown]
  - Facial pain [Unknown]
  - Mental disorder [Unknown]
  - Transient lingual papillitis [Unknown]
  - Anxiety [Not Recovered/Not Resolved]
  - Palpitations [Unknown]
  - Product use complaint [Unknown]
